APPROVED DRUG PRODUCT: NORETHINDRONE AND ETHINYL ESTRADIOL
Active Ingredient: ETHINYL ESTRADIOL; NORETHINDRONE
Strength: 0.035MG;0.4MG
Dosage Form/Route: TABLET;ORAL-28
Application: A200897 | Product #001
Applicant: XIROMED LLC
Approved: May 11, 2015 | RLD: No | RS: No | Type: DISCN